FAERS Safety Report 20701380 (Version 3)
Quarter: 2022Q2

REPORT INFORMATION
  Report Type: Report from Study
  Country: US (occurrence: US)
  Receive Date: 20220412
  Receipt Date: 20220623
  Transmission Date: 20220721
  Serious: Yes (Hospitalization, Other)
  Sender: FDA-Public Use
  Company Number: US-NOVARTISPH-NVSC2022US081766

PATIENT
  Age: 59 Year
  Sex: Male

DRUGS (2)
  1. ENTRESTO [Suspect]
     Active Substance: SACUBITRIL\VALSARTAN
     Indication: Cardiac failure
     Dosage: 100 MG (49/51 MG), BID
     Route: 048
     Dates: start: 201901
  2. VASCEPA [Concomitant]
     Active Substance: ICOSAPENT ETHYL
     Indication: Product used for unknown indication
     Dosage: UNK (FISH OIL SUPPLEMENT PRESCRIBED BY DOCTOR WITHIN THE LAST TWO YEARS)
     Route: 065
     Dates: start: 2020

REACTIONS (17)
  - Myocardial infarction [Recovered/Resolved]
  - Angina pectoris [Recovered/Resolved]
  - Angina pectoris [Recovered/Resolved]
  - Dyspnoea [Not Recovered/Not Resolved]
  - Diabetes mellitus [Unknown]
  - Gait disturbance [Unknown]
  - Dry mouth [Not Recovered/Not Resolved]
  - Alveolar osteitis [Not Recovered/Not Resolved]
  - Coronary artery disease [Unknown]
  - Glycosylated haemoglobin increased [Unknown]
  - Blood glucose increased [Unknown]
  - COVID-19 [Recovering/Resolving]
  - Pyrexia [Recovered/Resolved]
  - Chills [Recovered/Resolved]
  - Feeling abnormal [Unknown]
  - Fatigue [Not Recovered/Not Resolved]
  - Cough [Recovering/Resolving]

NARRATIVE: CASE EVENT DATE: 20200201
